FAERS Safety Report 21614769 (Version 3)
Quarter: 2022Q4

REPORT INFORMATION
  Report Type: Report from Study
  Country: JP (occurrence: JP)
  Receive Date: 20221118
  Receipt Date: 20221229
  Transmission Date: 20230113
  Serious: Yes (Hospitalization)
  Sender: FDA-Public Use
  Company Number: JP-PFIZER INC-PV202200102603

PATIENT
  Age: 80 Year
  Sex: Female
  Weight: 61 kg

DRUGS (10)
  1. ENCORAFENIB [Suspect]
     Active Substance: ENCORAFENIB
     Indication: Colorectal cancer metastatic
     Dosage: 300 MG, 1X/DAY
     Route: 048
     Dates: start: 20221109, end: 20221111
  2. LEVOLEUCOVORIN CALCIUM [Suspect]
     Active Substance: LEVOLEUCOVORIN CALCIUM
     Indication: Colorectal cancer metastatic
     Dosage: 300 MG, EVERY 2 WEEKS
     Route: 042
     Dates: start: 20221109
  3. OXALIPLATIN [Suspect]
     Active Substance: OXALIPLATIN
     Indication: Colorectal cancer metastatic
     Dosage: 120 MG, EVERY 2 WEEKS
     Route: 042
     Dates: start: 20221109
  4. CETUXIMAB [Suspect]
     Active Substance: CETUXIMAB
     Indication: Colorectal cancer metastatic
     Dosage: 750 MG, EVERY 2 WEEKS
     Route: 042
     Dates: start: 20221109
  5. FLUOROURACIL [Suspect]
     Active Substance: FLUOROURACIL
     Indication: Colorectal cancer metastatic
     Dosage: 600 MG FOR IV BOLUS, CYCLIC (EVERY 2 WEEKS)
     Route: 040
     Dates: start: 20221109
  6. FLUOROURACIL [Suspect]
     Active Substance: FLUOROURACIL
     Dosage: 3600 MG FOR IV INFUSION, EVERY 2 WEEKS
     Route: 042
     Dates: start: 20221109, end: 20221109
  7. VEMLIDY [Concomitant]
     Active Substance: TENOFOVIR ALAFENAMIDE FUMARATE
     Indication: Hepatitis B
     Dosage: UNK
     Dates: start: 20221012
  8. MAGNESIUM OXIDE [Concomitant]
     Active Substance: MAGNESIUM OXIDE
     Indication: Constipation
     Dosage: UNK
     Dates: start: 20221018
  9. ALOSENN [SENNOSIDE A+B] [Concomitant]
     Indication: Constipation
     Dosage: UNK
     Dates: start: 20221018
  10. HEPARINOID [Concomitant]
     Indication: Prophylaxis
     Dosage: UNK
     Dates: start: 20221109

REACTIONS (1)
  - Decreased appetite [Recovered/Resolved]

NARRATIVE: CASE EVENT DATE: 20221112
